FAERS Safety Report 20231785 (Version 1)
Quarter: 2021Q4

REPORT INFORMATION
  Report Type: Spontaneous
  Country: US (occurrence: US)
  Receive Date: 20211227
  Receipt Date: 20211227
  Transmission Date: 20220303
  Serious: No
  Sender: FDA-Public Use
  Company Number: US-JNJFOC-20211212403

PATIENT
  Age: 3 Year
  Sex: Female
  Weight: 13.620 kg

DRUGS (2)
  1. TYLENOL [Suspect]
     Active Substance: ACETAMINOPHEN
     Indication: Nasopharyngitis
     Route: 065
     Dates: start: 202112
  2. IBUPROFEN [Concomitant]
     Active Substance: IBUPROFEN
     Indication: Nasopharyngitis
     Route: 065
     Dates: start: 20211202

REACTIONS (1)
  - Nasopharyngitis [Not Recovered/Not Resolved]

NARRATIVE: CASE EVENT DATE: 20211201
